FAERS Safety Report 8337036-4 (Version None)
Quarter: 2012Q2

REPORT INFORMATION
  Report Type: 
  Country: None (occurrence: None)
  Receive Date: 20120504
  Receipt Date: 20110804
  Transmission Date: 20120825
  Serious: No
  Sender: FDA-Public Use
  Company Number: US-TEVA-2011003172

PATIENT
  Sex: Male
  Weight: 104.42 kg

DRUGS (10)
  1. SIMVASTATIN [Concomitant]
  2. ABILIFY [Concomitant]
  3. NUVIGIL [Suspect]
     Indication: CIRCADIAN RHYTHM SLEEP DISORDER
     Dosage: 150 MILLIGRAM;
     Route: 048
     Dates: start: 20110613, end: 20110615
  4. WELLBUTRIN [Concomitant]
  5. NUVIGIL [Suspect]
     Dosage: 250 MILLIGRAM;
     Route: 048
     Dates: start: 20110616, end: 20110617
  6. KLONOPIN [Concomitant]
  7. LISINOPRIL [Concomitant]
  8. ASPIRIN [Concomitant]
  9. CELEXA [Concomitant]
  10. BYSTOLIC [Concomitant]

REACTIONS (2)
  - RASH ERYTHEMATOUS [None]
  - BLISTER [None]
